FAERS Safety Report 8166027-1 (Version None)
Quarter: 2012Q1

REPORT INFORMATION
  Report Type: 
  Country: None (occurrence: None)
  Receive Date: 20120227
  Receipt Date: 20110217
  Transmission Date: 20120608
  Serious: No
  Sender: FDA-Public Use
  Company Number: US-MYLANLABS-2011S1003412

PATIENT
  Age: 50 Year
  Sex: Male

DRUGS (2)
  1. AMNESTEEM [Suspect]
     Indication: ACNE
     Dates: start: 20110110
  2. ARMODAFINIL [Concomitant]

REACTIONS (2)
  - CHAPPED LIPS [None]
  - DRY SKIN [None]
